FAERS Safety Report 11135712 (Version 1)
Quarter: 2015Q2

REPORT INFORMATION
  Report Type: Report from Study
  Country: US (occurrence: US)
  Receive Date: 20150526
  Receipt Date: 20150526
  Transmission Date: 20150821
  Serious: No
  Sender: FDA-Public Use
  Company Number: US-MALLINCKRODT-T201502108

PATIENT
  Age: 44 Year
  Sex: Male

DRUGS (1)
  1. H.P. ACTHAR [Suspect]
     Active Substance: CORTICOTROPIN
     Indication: RELAPSING-REMITTING MULTIPLE SCLEROSIS
     Dosage: 80 UNITS/DAY
     Route: 065
     Dates: start: 20130219, end: 20130223

REACTIONS (2)
  - Fluid retention [Unknown]
  - Injection site pain [Unknown]
